APPROVED DRUG PRODUCT: PROTONIX
Active Ingredient: PANTOPRAZOLE SODIUM
Strength: EQ 40MG BASE
Dosage Form/Route: FOR SUSPENSION, DELAYED RELEASE;ORAL
Application: N022020 | Product #001 | TE Code: AB
Applicant: WYETH PHARMACEUTICALS LLC
Approved: Nov 14, 2007 | RLD: Yes | RS: Yes | Type: RX

PATENTS:
Patent 7544370 | Expires: Jun 7, 2026
Patent 7544370*PED | Expires: Dec 7, 2026